FAERS Safety Report 14018781 (Version 4)
Quarter: 2020Q2

REPORT INFORMATION
  Report Type: Spontaneous
  Country: US (occurrence: US)
  Receive Date: 20170928
  Receipt Date: 20200617
  Transmission Date: 20200713
  Serious: No
  Sender: FDA-Public Use
  Company Number: US-PFIZER INC-2017417454

PATIENT
  Age: 54 Year
  Sex: Male
  Weight: 92.53 kg

DRUGS (5)
  1. DILANTIN [Suspect]
     Active Substance: PHENYTOIN
     Indication: SEIZURE
     Dosage: 500 MG, DAILY (200 MG IN MORNING AND 300 MG LATER IN THE DAY)
  2. DILANTIN [Suspect]
     Active Substance: PHENYTOIN
     Indication: NERVOUS SYSTEM DISORDER
     Dosage: 500 MG DAILY (5 OF 100 MG CAPSULES DAILY: 2 IN MORNING AND 3 IN AFTERNOON)
  3. DILANTIN [Suspect]
     Active Substance: PHENYTOIN
     Indication: GENERALISED TONIC-CLONIC SEIZURE
  4. KEPPRA [Concomitant]
     Active Substance: LEVETIRACETAM
     Indication: GENERALISED TONIC-CLONIC SEIZURE
  5. KEPPRA [Concomitant]
     Active Substance: LEVETIRACETAM
     Indication: NERVOUS SYSTEM DISORDER
     Dosage: 500 MG, 2X/DAY

REACTIONS (8)
  - Somnolence [Not Recovered/Not Resolved]
  - Confusional state [Unknown]
  - Intentional product misuse [Unknown]
  - Product dose omission [Unknown]
  - Weight increased [Unknown]
  - Anticonvulsant drug level decreased [Unknown]
  - Laziness [Unknown]
  - Memory impairment [Unknown]
